FAERS Safety Report 7200073-7 (Version None)
Quarter: 2010Q4

REPORT INFORMATION
  Report Type: 
  Country: None (occurrence: None)
  Receive Date: 20101228
  Receipt Date: 20101222
  Transmission Date: 20110411
  Serious: Yes (Other)
  Sender: FDA-Public Use
  Company Number: CA-ABBOTT-10P-028-0693313-00

PATIENT
  Sex: Female
  Weight: 86.26 kg

DRUGS (2)
  1. HUMIRA [Suspect]
     Indication: CROHN'S DISEASE
     Route: 058
     Dates: start: 20050801, end: 20101201
  2. HUMIRA [Suspect]
     Route: 058
     Dates: start: 20101201

REACTIONS (4)
  - AMNIOTIC FLUID VOLUME INCREASED [None]
  - ANAL ABSCESS [None]
  - CAESAREAN SECTION [None]
  - INFLAMMATION [None]
